FAERS Safety Report 8546019-0 (Version None)
Quarter: 2012Q3

REPORT INFORMATION
  Report Type: 
  Country: None (occurrence: None)
  Receive Date: 20120727
  Receipt Date: 20111201
  Transmission Date: 20120928
  Serious: No
  Sender: FDA-Public Use
  Company Number: US-ASTRAZENECA-2011SE73221

PATIENT
  Sex: Male

DRUGS (2)
  1. SEROQUEL [Suspect]
     Dosage: 3-4 TABLETS AT NIGHT
     Route: 048
  2. SEROQUEL [Suspect]
     Indication: SLEEP DISORDER
     Dosage: 2 TABLETS AT NIGHT
     Route: 048

REACTIONS (3)
  - THERAPEUTIC PRODUCT INEFFECTIVE [None]
  - INCORRECT DOSE ADMINISTERED [None]
  - OFF LABEL USE [None]
